FAERS Safety Report 4707603-5 (Version None)
Quarter: 2005Q3

REPORT INFORMATION
  Report Type: 
  Country: None (occurrence: None)
  Receive Date: 20050705
  Receipt Date: 20050615
  Transmission Date: 20060218
  Serious: Yes (Hospitalization)
  Sender: FDA-Public Use
  Company Number: B0381158A

PATIENT
  Age: 16 Year
  Sex: Male

DRUGS (1)
  1. ALBENZA [Suspect]
     Dosage: 2 TABLET SINGLE DOSE
     Dates: start: 20021017

REACTIONS (2)
  - ABDOMINAL PAIN [None]
  - ENTEROCOLITIS HAEMORRHAGIC [None]
